FAERS Safety Report 6560508-X (Version None)
Quarter: 2010Q1

REPORT INFORMATION
  Report Type: 
  Country: None (occurrence: None)
  Receive Date: 20100129
  Receipt Date: 20091013
  Transmission Date: 20100710
  Serious: No
  Sender: FDA-Public Use
  Company Number: US-ABBOTT-09P-163-0598863-00

PATIENT
  Sex: Female
  Weight: 81.72 kg

DRUGS (8)
  1. HUMIRA [Suspect]
     Indication: PSORIATIC ARTHROPATHY
     Route: 058
     Dates: start: 20090701, end: 20090904
  2. METHOTREXATE [Concomitant]
     Indication: PSORIATIC ARTHROPATHY
     Route: 048
     Dates: end: 20090904
  3. OXYCODONE HCL AND ACETAMINOPHEN [Concomitant]
     Indication: PAIN
     Route: 048
  4. FLEXERIL [Concomitant]
     Indication: PSORIATIC ARTHROPATHY
     Route: 048
  5. TYLENOL-500 [Concomitant]
     Indication: PSORIATIC ARTHROPATHY
     Route: 048
  6. TYLENOL-500 [Concomitant]
     Indication: ARTHRALGIA
  7. NEXIUM [Concomitant]
     Indication: ULCER
     Dosage: UNSURE OF STRENGTH
     Route: 048
  8. NEXIUM [Concomitant]
     Indication: GASTROOESOPHAGEAL REFLUX DISEASE

REACTIONS (10)
  - ABASIA [None]
  - ARTHRALGIA [None]
  - BONE LESION [None]
  - DRUG DOSE OMISSION [None]
  - DRUG INEFFECTIVE [None]
  - LOCALISED OEDEMA [None]
  - MOBILITY DECREASED [None]
  - NEOPLASM [None]
  - OEDEMA PERIPHERAL [None]
  - OVARIAN CYST [None]
